FAERS Safety Report 5191897-9 (Version None)
Quarter: 2006Q4

REPORT INFORMATION
  Report Type: 
  Country: None (occurrence: None)
  Receive Date: 20061227
  Receipt Date: 20061207
  Transmission Date: 20070319
  Serious: Yes (Other)
  Sender: FDA-Public Use
  Company Number: PHBS2006NZ19283

PATIENT
  Sex: Female

DRUGS (1)
  1. GLEEVEC [Suspect]
     Indication: GASTROINTESTINAL STROMAL TUMOUR
     Dates: start: 20040101

REACTIONS (5)
  - BLADDER DISORDER [None]
  - DIARRHOEA [None]
  - EYE SWELLING [None]
  - MALIGNANT TUMOUR EXCISION [None]
  - VISION BLURRED [None]
